FAERS Safety Report 11008237 (Version 2)
Quarter: 2015Q2

REPORT INFORMATION
  Report Type: Spontaneous
  Country: CN (occurrence: CN)
  Receive Date: 20150410
  Receipt Date: 20150415
  Transmission Date: 20150821
  Serious: Yes (Death)
  Sender: FDA-Public Use
  Company Number: CN-ROCHE-1562681

PATIENT
  Age: 59 Year
  Sex: Male

DRUGS (2)
  1. DOCETAXEL. [Concomitant]
     Active Substance: DOCETAXEL
     Indication: GASTRIC CANCER
     Route: 042
     Dates: start: 20150203, end: 20150203
  2. XELODA [Suspect]
     Active Substance: CAPECITABINE
     Indication: GASTRIC CANCER
     Route: 048
     Dates: start: 20150203, end: 20150203

REACTIONS (1)
  - Myocardial infarction [Fatal]

NARRATIVE: CASE EVENT DATE: 20150203
